FAERS Safety Report 6152978-6 (Version None)
Quarter: 2009Q2

REPORT INFORMATION
  Report Type: 
  Country: None (occurrence: None)
  Receive Date: 20090413
  Receipt Date: 20090407
  Transmission Date: 20091009
  Serious: Yes (Death, Hospitalization)
  Sender: FDA-Public Use
  Company Number: A0718384A

PATIENT
  Age: 79 Year
  Sex: Female

DRUGS (9)
  1. AVANDIA [Suspect]
     Dosage: 4MG PER DAY
     Route: 048
     Dates: start: 20051004, end: 20061001
  2. GLUCOTROL [Concomitant]
     Dates: start: 20010101, end: 20061001
  3. GLUCOSAMINE [Concomitant]
  4. GABAPENTIN [Concomitant]
  5. LEVOXYL [Concomitant]
  6. AMBIEN [Concomitant]
  7. EPOGEN [Concomitant]
  8. BENAZEPRIL HYDROCHLORIDE [Concomitant]
  9. NEURONTIN [Concomitant]

REACTIONS (3)
  - ARRHYTHMIA [None]
  - INJURY [None]
  - MYOCARDIAL INFARCTION [None]
